FAERS Safety Report 7070214-3 (Version None)
Quarter: 2010Q4

REPORT INFORMATION
  Report Type: 
  Country: None (occurrence: None)
  Receive Date: 20101028
  Receipt Date: 20101018
  Transmission Date: 20110411
  Serious: No
  Sender: FDA-Public Use
  Company Number: US-WYE-H17602710

PATIENT
  Age: 86 Year
  Sex: Male
  Weight: 81.72 kg

DRUGS (2)
  1. ADVIL [Suspect]
     Indication: ARTHRALGIA
     Dosage: 2 TABLETS 2 TO 3 TIMES DAILY
     Route: 048
     Dates: start: 20100101, end: 20100909
  2. ADVIL [Suspect]
     Dosage: UNKNOWN
     Route: 048
     Dates: start: 20100101

REACTIONS (2)
  - DYSURIA [None]
  - URINE ABNORMALITY [None]
